FAERS Safety Report 6998659-8 (Version None)
Quarter: 2010Q3

REPORT INFORMATION
  Report Type: 
  Country: None (occurrence: None)
  Receive Date: 20100920
  Receipt Date: 20070305
  Transmission Date: 20110219
  Serious: Yes (Other)
  Sender: FDA-Public Use
  Company Number: US-ASTRAZENECA-2006UW24957

PATIENT
  Age: 33 Year
  Sex: Female
  Weight: 82.6 kg

DRUGS (26)
  1. SEROQUEL [Suspect]
     Indication: DEPRESSION
     Route: 048
     Dates: start: 20021001
  2. SEROQUEL [Suspect]
     Indication: SLEEP DISORDER
     Route: 048
     Dates: start: 20021001
  3. SEROQUEL [Suspect]
     Indication: HALLUCINATION, AUDITORY
     Route: 048
     Dates: start: 20021001
  4. SEROQUEL [Suspect]
     Dosage: 300 MG TO 400 MG AT BEDTIME
     Route: 048
     Dates: start: 20021122
  5. SEROQUEL [Suspect]
     Dosage: 300 MG TO 400 MG AT BEDTIME
     Route: 048
     Dates: start: 20021122
  6. SEROQUEL [Suspect]
     Dosage: 300 MG TO 400 MG AT BEDTIME
     Route: 048
     Dates: start: 20021122
  7. RISPERDAL [Concomitant]
     Indication: DEPRESSION
     Dosage: 1-3 MG DAILY
     Route: 048
     Dates: start: 20070223
  8. RISPERDAL [Concomitant]
     Indication: ANXIETY
     Dosage: 1-3 MG DAILY
     Route: 048
     Dates: start: 20070223
  9. RISPERDAL [Concomitant]
     Indication: AFFECTIVE DISORDER
     Dosage: 1-3 MG DAILY
     Route: 048
     Dates: start: 20070223
  10. RISPERDAL [Concomitant]
  11. RISPERDAL [Concomitant]
  12. RISPERDAL [Concomitant]
  13. DEPAKOTE [Concomitant]
     Indication: MENTAL STATUS CHANGES
     Dates: start: 20020101
  14. DEPAKOTE [Concomitant]
     Indication: HEADACHE
     Dates: start: 20020101
  15. CELEXA [Concomitant]
     Indication: DEPRESSION
     Dates: start: 20021122
  16. PAXIL [Concomitant]
     Indication: PANIC ATTACK
     Dosage: 20-40 MG DAILY
     Route: 048
     Dates: start: 20031218
  17. PAXIL [Concomitant]
     Indication: DEPRESSION
     Dosage: 20-40 MG DAILY
     Route: 048
     Dates: start: 20031218
  18. METOCLOPRAMIDE [Concomitant]
     Route: 048
     Dates: start: 20041113
  19. LORATADINE [Concomitant]
     Route: 048
     Dates: start: 20041113
  20. LAMOTRIGINE [Concomitant]
     Route: 048
     Dates: start: 20041113
  21. RANITIDINE [Concomitant]
     Route: 048
     Dates: start: 20041113
  22. LITHIUM CARBONATE [Concomitant]
     Dates: start: 20060417
  23. RESTORIL [Concomitant]
     Indication: SLEEP DISORDER
     Dosage: 15-30 MG DAILY
     Dates: start: 20070223, end: 20070618
  24. ABILIFY [Concomitant]
     Dates: start: 20070618
  25. APAP/BUTALBITAL/CAFF [Concomitant]
     Indication: PAIN
     Dosage: 325/50/40 MG-TAKE 1 TABLET BY MOUTH TWICE A DAY AS NEEDED
     Route: 048
     Dates: start: 20070928
  26. CHLORPHENIRAMINE MALEATE [Concomitant]
     Indication: HYPERSENSITIVITY
     Dosage: 4 MG TWO TABLETS TWICE A DAY AS NEEDED
     Route: 048
     Dates: start: 20070928

REACTIONS (4)
  - DIABETES MELLITUS [None]
  - HYPERGLYCAEMIA [None]
  - KETOACIDOSIS [None]
  - PANCREATITIS [None]
